FAERS Safety Report 7493957-6 (Version None)
Quarter: 2011Q2

REPORT INFORMATION
  Report Type: 
  Country: None (occurrence: None)
  Receive Date: 20110520
  Receipt Date: 20110505
  Transmission Date: 20111010
  Serious: Yes (Hospitalization)
  Sender: FDA-Public Use
  Company Number: DE-MEDIMMUNE-MEDI-0013101

PATIENT
  Sex: Male
  Weight: 3.86 kg

DRUGS (3)
  1. 6 FOLD IMMUNISATION STIKO ADVICE [Concomitant]
  2. PNEUMOCOCCI IMMUNIZATION [Concomitant]
  3. SYNAGIS [Suspect]
     Route: 030
     Dates: start: 20101001, end: 20110109

REACTIONS (19)
  - LUNG DISORDER [None]
  - ANAEMIA [None]
  - NEONATAL RESPIRATORY DISTRESS SYNDROME [None]
  - PREMATURE CLOSURE OF CRANIAL SUTURES [None]
  - HYPERBILIRUBINAEMIA [None]
  - SUPERINFECTION [None]
  - INFECTION [None]
  - DERMATITIS DIAPER [None]
  - RHINITIS [None]
  - RESPIRATORY SYNCYTIAL VIRUS INFECTION [None]
  - BRONCHIAL OBSTRUCTION [None]
  - PNEUMONIA [None]
  - HYPOCALCAEMIA [None]
  - ORAL CANDIDIASIS [None]
  - BRONCHOPULMONARY DYSPLASIA [None]
  - APNOEA [None]
  - HYPOKALAEMIA [None]
  - RESPIRATORY FAILURE [None]
  - RESPIRATORY SYNCYTIAL VIRUS BRONCHITIS [None]
